FAERS Safety Report 4872172-6 (Version None)
Quarter: 2006Q1

REPORT INFORMATION
  Report Type: 
  Country: None (occurrence: None)
  Receive Date: 20060103
  Receipt Date: 20051219
  Transmission Date: 20060701
  Serious: Yes (Other)
  Sender: FDA-Public Use
  Company Number: S05-FRA-05747-01

PATIENT
  Age: 23 Year
  Sex: Female

DRUGS (3)
  1. SEROPLEX (ESCITALOPRAM) [Suspect]
     Indication: PANIC ATTACK
     Dosage: 10 MG QD PO
     Route: 048
     Dates: start: 20051022
  2. MINOCIN [Suspect]
     Indication: ACNE
     Dosage: 100 MG QD PO
     Route: 048
  3. XANAX [Concomitant]

REACTIONS (3)
  - MALLORY-WEISS SYNDROME [None]
  - OESOPHAGITIS [None]
  - VOMITING [None]
